FAERS Safety Report 10608326 (Version 2)
Quarter: 2015Q1

REPORT INFORMATION
  Report Type: Spontaneous
  Country: US (occurrence: US)
  Receive Date: 20141125
  Receipt Date: 20150120
  Transmission Date: 20150720
  Serious: Yes (Death, Life-Threatening, Other)
  Sender: FDA-Public Use
  Company Number: US-009507513-1411USA011517

PATIENT
  Sex: Male
  Weight: 74.83 kg

DRUGS (8)
  1. JANUVIA [Suspect]
     Active Substance: SITAGLIPTIN PHOSPHATE
     Dosage: 100 MG, QD
     Route: 048
     Dates: start: 201301, end: 201305
  2. PRILOSEC [Concomitant]
     Active Substance: OMEPRAZOLE MAGNESIUM
     Indication: GASTROOESOPHAGEAL REFLUX DISEASE
     Dosage: UNK
     Dates: start: 2008, end: 201405
  3. JANUVIA [Suspect]
     Active Substance: SITAGLIPTIN PHOSPHATE
     Indication: TYPE 2 DIABETES MELLITUS
     Dosage: 50 MG, QD
     Route: 048
     Dates: start: 201209, end: 201212
  4. VITAMIN A [Concomitant]
     Active Substance: VITAMIN A
     Dosage: UNK
     Dates: start: 2007, end: 201405
  5. OMEGA-3 MARINE TRIGLYCERIDES [Concomitant]
     Active Substance: FISH OIL
     Dosage: UNK
     Dates: start: 2010, end: 201405
  6. VITAMIN B (UNSPECIFIED) [Concomitant]
     Dosage: UNK
     Dates: start: 2007, end: 201405
  7. ASCORBIC ACID. [Concomitant]
     Active Substance: ASCORBIC ACID
     Dosage: UNK
     Dates: start: 2007, end: 201405
  8. VITAMIN D [Concomitant]
     Active Substance: CHOLECALCIFEROL
     Dosage: UNK
     Dates: start: 2007, end: 201405

REACTIONS (18)
  - Urinary tract infection [Unknown]
  - Nephrolithiasis [Unknown]
  - Depression [Unknown]
  - Metastases to lymph nodes [Unknown]
  - Mycosis fungoides [Recovered/Resolved]
  - Sleep apnoea syndrome [Unknown]
  - Tumour thrombosis [Unknown]
  - Intraocular lens implant [Unknown]
  - Pancreatic carcinoma [Fatal]
  - Deafness [Not Recovered/Not Resolved]
  - Carpal tunnel decompression [Unknown]
  - Breast pain [Unknown]
  - Metastases to liver [Unknown]
  - Asthma [Unknown]
  - Irritable bowel syndrome [Unknown]
  - Benign prostatic hyperplasia [Unknown]
  - Splenomegaly [Unknown]
  - Scoliosis [Unknown]

NARRATIVE: CASE EVENT DATE: 201209
